FAERS Safety Report 7041473-8 (Version None)
Quarter: 2010Q4

REPORT INFORMATION
  Report Type: 
  Country: None (occurrence: None)
  Receive Date: 20101013
  Receipt Date: 20090929
  Transmission Date: 20110411
  Serious: No
  Sender: FDA-Public Use
  Company Number: US-ASTRAZENECA-2009SE16342

PATIENT
  Age: 26279 Day
  Sex: Female
  Weight: 63.5 kg

DRUGS (1)
  1. SYMBICORT [Suspect]
     Dosage: 640MCG TWO TIMES A DAY
     Route: 055
     Dates: start: 20090915, end: 20090929

REACTIONS (2)
  - OROPHARYNGEAL PAIN [None]
  - TREMOR [None]
